FAERS Safety Report 6980089-6 (Version None)
Quarter: 2010Q3

REPORT INFORMATION
  Report Type: 
  Country: None (occurrence: None)
  Receive Date: 20100914
  Receipt Date: 20100831
  Transmission Date: 20110219
  Serious: Yes (Hospitalization)
  Sender: FDA-Public Use
  Company Number: NO-JNJFOC-20100903259

PATIENT
  Sex: Male

DRUGS (2)
  1. TRAMADOL HCL [Suspect]
     Indication: PAIN
     Route: 048
  2. SEROQUEL [Suspect]
     Indication: AFFECTIVE DISORDER
     Route: 048

REACTIONS (3)
  - NEUTROPENIA [None]
  - OVERDOSE [None]
  - URINARY RETENTION [None]
